FAERS Safety Report 23266888 (Version 1)
Quarter: 2023Q4

REPORT INFORMATION
  Report Type: Report from Study
  Country: CN (occurrence: CN)
  Receive Date: 20231206
  Receipt Date: 20231206
  Transmission Date: 20240110
  Serious: Yes (Hospitalization)
  Sender: FDA-Public Use
  Company Number: CN-TAKEDA-2023TUS041441

PATIENT
  Age: 31 Year
  Sex: Female
  Weight: 57 kg

DRUGS (10)
  1. BRENTUXIMAB VEDOTIN [Suspect]
     Active Substance: BRENTUXIMAB VEDOTIN
     Indication: T-cell lymphoma
     Dosage: 100 MILLIGRAM, Q3WEEKS
     Route: 041
     Dates: start: 20230211
  2. BRENTUXIMAB VEDOTIN [Suspect]
     Active Substance: BRENTUXIMAB VEDOTIN
     Indication: Lymphoma
  3. BRENTUXIMAB VEDOTIN [Suspect]
     Active Substance: BRENTUXIMAB VEDOTIN
     Indication: Natural killer-cell lymphoblastic lymphoma
  4. FEBUXOSTAT [Suspect]
     Active Substance: FEBUXOSTAT
     Indication: Lymphoma
     Dosage: 20 MILLIGRAM, QD
     Route: 048
     Dates: start: 20230211
  5. DEXAMETHASONE SODIUM PHOSPHATE [Suspect]
     Active Substance: DEXAMETHASONE PHOSPHATE\DEXAMETHASONE SODIUM PHOSPHATE
     Indication: Lymphoma
     Dosage: 5 MILLIGRAM
     Route: 042
     Dates: start: 20230211, end: 20230211
  6. PREDNISONE ACETATE [Suspect]
     Active Substance: PREDNISONE ACETATE
     Indication: Lymphoma
     Dosage: 5 MILLIGRAM, QD
     Route: 048
     Dates: start: 20230211
  7. FAMOTIDINE [Concomitant]
     Active Substance: FAMOTIDINE
     Indication: Gastrointestinal disorder prophylaxis
     Dosage: 20 MILLIGRAM, BID
     Route: 041
     Dates: start: 20230210, end: 20230212
  8. MANNATIDE [Concomitant]
     Indication: Prophylaxis
     Dosage: 10 MILLIGRAM, QD
     Route: 042
     Dates: start: 20230209, end: 20230212
  9. Sodium acetate ringer [Concomitant]
     Indication: Supplementation therapy
     Dosage: 500 MILLILITER, QD
     Route: 041
     Dates: start: 20230210, end: 20230212
  10. VITAMIN D3 [Concomitant]
     Active Substance: CHOLECALCIFEROL
     Indication: Vitamin supplementation
     Dosage: 10 MILLILITER, QD
     Route: 041
     Dates: start: 20230210, end: 20230212

REACTIONS (5)
  - Aspartate aminotransferase increased [Not Recovered/Not Resolved]
  - Alanine aminotransferase increased [Recovering/Resolving]
  - White blood cell count increased [Recovered/Resolved]
  - Neutrophil count increased [Recovered/Resolved]
  - Off label use [Unknown]

NARRATIVE: CASE EVENT DATE: 20230211
